FAERS Safety Report 5267629-2 (Version None)
Quarter: 2007Q1

REPORT INFORMATION
  Report Type: 
  Country: None (occurrence: None)
  Receive Date: 20070316
  Receipt Date: 20070307
  Transmission Date: 20070707
  Serious: Yes (Hospitalization, Other)
  Sender: FDA-Public Use
  Company Number: US-ABBOTT-07P-163-0361452-00

PATIENT
  Sex: Female
  Weight: 76.726 kg

DRUGS (6)
  1. HUMIRA [Suspect]
     Indication: RHEUMATOID ARTHRITIS
     Route: 058
     Dates: start: 20050101, end: 20060601
  2. HUMIRA [Suspect]
     Route: 058
     Dates: start: 20060801
  3. KARVEA HCT [Concomitant]
     Indication: DIURETIC THERAPY
     Dosage: 150/12.5 MILLIGRAM
     Route: 048
     Dates: start: 20050101
  4. VITAMINS [Concomitant]
     Indication: DRUG USE FOR UNKNOWN INDICATION
     Route: 048
  5. PREDNISONE [Concomitant]
     Indication: RHEUMATOID ARTHRITIS
     Route: 048
     Dates: start: 20010101
  6. VICODIN [Concomitant]
     Indication: PAIN
     Route: 048
     Dates: start: 20010101

REACTIONS (6)
  - FALL [None]
  - INJECTION SITE ERYTHEMA [None]
  - INJECTION SITE PRURITUS [None]
  - MUSCULOSKELETAL PAIN [None]
  - POST PROCEDURAL COMPLICATION [None]
  - ROTATOR CUFF SYNDROME [None]
